FAERS Safety Report 25973438 (Version 1)
Quarter: 2025Q4

REPORT INFORMATION
  Report Type: Spontaneous
  Country: US (occurrence: US)
  Receive Date: 20251029
  Receipt Date: 20251029
  Transmission Date: 20260118
  Serious: Yes (Other)
  Sender: ABBVIE
  Company Number: US-ABBVIE-6521024

PATIENT
  Sex: Female

DRUGS (1)
  1. REFRESH PLUS [Suspect]
     Active Substance: CARBOXYMETHYLCELLULOSE SODIUM
     Indication: Lacrimation increased
     Dosage: PRESERVATIVE FREE?OPHTHALMIC
     Route: 065

REACTIONS (3)
  - Macular degeneration [Unknown]
  - Therapeutic product effect decreased [Unknown]
  - Off label use [Unknown]
